FAERS Safety Report 7224344-3 (Version None)
Quarter: 2011Q1

REPORT INFORMATION
  Report Type: 
  Country: None (occurrence: None)
  Receive Date: 20110113
  Receipt Date: 20101203
  Transmission Date: 20110831
  Serious: Yes (Other)
  Sender: FDA-Public Use
  Company Number: US-BAYER-201024397NA

PATIENT
  Sex: Female
  Weight: 59 kg

DRUGS (12)
  1. YASMIN [Suspect]
     Route: 048
     Dates: start: 20050617, end: 20071219
  2. YAZ [Suspect]
     Indication: PREMENSTRUAL SYNDROME
  3. YASMIN [Suspect]
     Indication: ACNE
     Route: 048
     Dates: start: 20040101, end: 20080101
  4. OCELLA [Suspect]
     Indication: PREMENSTRUAL SYNDROME
  5. OVCON-35 - 28 [Concomitant]
     Dates: start: 20050417
  6. LEVORA 0.15/30-28 [Concomitant]
     Route: 048
     Dates: start: 20090208, end: 20091213
  7. YAZ [Suspect]
     Indication: ACNE
     Route: 048
     Dates: start: 20050101
  8. YASMIN [Suspect]
     Indication: PREMENSTRUAL SYNDROME
     Route: 048
     Dates: start: 20080101
  9. OCELLA [Suspect]
     Indication: ACNE
     Route: 048
     Dates: start: 20081216
  10. NAPROXEN [Concomitant]
  11. UNCODEABLE ^UNCLASSIFIABLE^ [Concomitant]
     Indication: ABDOMINAL PAIN
     Dosage: UNK UNK, Q4HR
     Route: 048
     Dates: start: 20090504
  12. DICYCLOMINE [Concomitant]
     Dosage: 1 U, Q4HR
     Route: 048
     Dates: start: 20090429

REACTIONS (2)
  - CHOLECYSTITIS CHRONIC [None]
  - CHOLELITHIASIS [None]
